FAERS Safety Report 24287087 (Version 2)
Quarter: 2024Q3

REPORT INFORMATION
  Report Type: Spontaneous
  Country: US (occurrence: US)
  Receive Date: 20240905
  Receipt Date: 20240916
  Transmission Date: 20241017
  Serious: No
  Sender: ABBVIE
  Company Number: US-ABBVIE-5907381

PATIENT
  Age: 51 Year
  Sex: Female
  Weight: 51.255 kg

DRUGS (10)
  1. UBRELVY [Suspect]
     Active Substance: UBROGEPANT
     Indication: Migraine
     Dosage: FORM STRENGTH 100 MILLIGRAM
     Route: 048
     Dates: start: 20240822, end: 20240823
  2. TORADOL [Concomitant]
     Active Substance: KETOROLAC TROMETHAMINE
     Indication: Migraine
  3. CARISOPRODOL [Concomitant]
     Active Substance: CARISOPRODOL
     Indication: Muscle relaxant therapy
  4. LOVASTATIN [Concomitant]
     Active Substance: LOVASTATIN
     Indication: Blood cholesterol
  5. TRAMADOL [Concomitant]
     Active Substance: TRAMADOL\TRAMADOL HYDROCHLORIDE
     Indication: Pain
  6. EXEMESTANE [Concomitant]
     Active Substance: EXEMESTANE
     Indication: Neoplasm prophylaxis
  7. DOCUSATE [Concomitant]
     Active Substance: DOCUSATE
     Indication: Faeces hard
  8. ASPIRIN [Concomitant]
     Active Substance: ASPIRIN
     Indication: Cerebrovascular accident
  9. VITAMIN D NOS [Concomitant]
     Active Substance: CHOLECALCIFEROL\ERGOCALCIFEROL
     Indication: Vitamin supplementation
  10. AIMOVIG [Concomitant]
     Active Substance: ERENUMAB-AOOE
     Indication: Migraine

REACTIONS (2)
  - Migraine [Not Recovered/Not Resolved]
  - Drug ineffective [Unknown]

NARRATIVE: CASE EVENT DATE: 20240801
